FAERS Safety Report 14308227 (Version 4)
Quarter: 2018Q1

REPORT INFORMATION
  Report Type: Spontaneous
  Country: US (occurrence: US)
  Receive Date: 20171220
  Receipt Date: 20180328
  Transmission Date: 20180509
  Serious: Yes (Hospitalization)
  Sender: FDA-Public Use
  Company Number: US-ACTELION-A-NJ2017-164459

PATIENT
  Age: 53 Year
  Sex: Female
  Weight: 43.99 kg

DRUGS (1)
  1. VELETRI [Suspect]
     Active Substance: EPOPROSTENOL
     Indication: PULMONARY HYPERTENSION
     Dosage: 18 NG/KG, PER MIN
     Route: 042

REACTIONS (10)
  - Viral infection [Unknown]
  - Nausea [Unknown]
  - Decreased appetite [Unknown]
  - Hypokalaemia [Unknown]
  - Diarrhoea [Unknown]
  - Vomiting [Unknown]
  - Dehydration [Unknown]
  - Fatigue [Unknown]
  - Tremor [Unknown]
  - Chest pain [Unknown]

NARRATIVE: CASE EVENT DATE: 20180224
